FAERS Safety Report 4968920-7 (Version None)
Quarter: 2006Q2

REPORT INFORMATION
  Report Type: 
  Country: None (occurrence: None)
  Receive Date: 20060411
  Receipt Date: 20051019
  Transmission Date: 20061013
  Serious: Yes (Hospitalization, Other)
  Sender: FDA-Public Use
  Company Number: US-MERCK-0510USA08317

PATIENT
  Age: 52 Year
  Sex: Male
  Weight: 80 kg

DRUGS (20)
  1. VIOXX [Suspect]
     Indication: NECK PAIN
     Route: 048
     Dates: start: 20000101, end: 20010623
  2. VIOXX [Suspect]
     Indication: SHOULDER PAIN
     Route: 048
     Dates: start: 20000101, end: 20010623
  3. NITROGLYCERIN [Concomitant]
     Route: 060
  4. PERCOCET [Concomitant]
     Route: 065
  5. NEURONTIN [Concomitant]
     Route: 048
  6. EFFEXOR XR [Concomitant]
     Route: 048
  7. PREVACID [Concomitant]
     Route: 048
  8. ZOCOR [Concomitant]
     Route: 048
  9. ZOCOR [Concomitant]
     Route: 048
  10. PRINIVIL [Concomitant]
     Route: 048
  11. NORVASC [Concomitant]
     Route: 048
  12. WELLBUTRIN SR [Concomitant]
     Route: 048
  13. LOPRESSOR [Concomitant]
     Route: 048
  14. IMDUR [Concomitant]
     Route: 048
  15. ASPIRIN [Concomitant]
     Route: 048
  16. KLONOPIN [Concomitant]
     Route: 048
  17. IBUPROFEN [Concomitant]
     Route: 065
  18. TYLENOL (CAPLET) [Concomitant]
     Route: 065
  19. SKELAXIN [Concomitant]
     Route: 065
  20. GABAPENTIN [Concomitant]
     Route: 065

REACTIONS (15)
  - ACUTE MYOCARDIAL INFARCTION [None]
  - AORTIC DISSECTION [None]
  - BLOOD PRESSURE INCREASED [None]
  - BRONCHITIS [None]
  - CHEST PAIN [None]
  - CORONARY ARTERY DISEASE [None]
  - CORONARY ARTERY OCCLUSION [None]
  - DIABETES MELLITUS NON-INSULIN-DEPENDENT [None]
  - HYPERLIPIDAEMIA [None]
  - MAJOR DEPRESSION [None]
  - MENTAL DISORDER [None]
  - MYOCARDIAL INFARCTION [None]
  - PULMONARY EMBOLISM [None]
  - SUICIDAL IDEATION [None]
  - VENTRICULAR TACHYCARDIA [None]
